FAERS Safety Report 10695006 (Version 1)
Quarter: 2015Q1

REPORT INFORMATION
  Report Type: Spontaneous
  Country: US (occurrence: None)
  Receive Date: 20150105
  Receipt Date: 20150105
  Transmission Date: 20150721
  Serious: No
  Sender: FDA-Public Use
  Company Number: None

PATIENT
  Age: 27 Year
  Sex: Male
  Weight: 56.7 kg

DRUGS (1)
  1. TETOSTERONE CYPONIATE 200MG/ML [Suspect]
     Active Substance: TESTOSTERONE CYPIONATE
     Indication: BLOOD TESTOSTERONE DECREASED
     Dosage: 10 INJECTIONS, INTO THE MUSCLE, JULY TO SEPTEMBER 2013

REACTIONS (3)
  - Drug ineffective [None]
  - No adverse event [None]
  - Suspected counterfeit product [None]

NARRATIVE: CASE EVENT DATE: 20130701
